FAERS Safety Report 4288576-9 (Version None)
Quarter: 2004Q1

REPORT INFORMATION
  Report Type: 
  Country: None (occurrence: None)
  Receive Date: 20040205
  Receipt Date: 20040123
  Transmission Date: 20041129
  Serious: Yes (Death, Hospitalization)
  Sender: FDA-Public Use
  Company Number: 03P-163-0243891-00

PATIENT
  Age: 70 Year
  Sex: Male

DRUGS (1)
  1. HUMIRA [Suspect]
     Dosage: 40 MG, 1 IN 2 WK, SUBCUTANEOUS
     Route: 058
     Dates: start: 20030101, end: 20030101

REACTIONS (17)
  - AORTIC ANEURYSM RUPTURE [None]
  - ARRHYTHMIA [None]
  - ATRIAL FIBRILLATION [None]
  - BACK PAIN [None]
  - COLITIS ISCHAEMIC [None]
  - COMA [None]
  - DIALYSIS [None]
  - GENERAL PHYSICAL HEALTH DETERIORATION [None]
  - HYPERHIDROSIS [None]
  - JAUNDICE CHOLESTATIC [None]
  - MENTAL STATUS CHANGES [None]
  - OMENTUM NEOPLASM [None]
  - PERITONEAL HAEMATOMA [None]
  - PYREXIA [None]
  - RENAL FAILURE [None]
  - RESPIRATORY FAILURE [None]
  - SEPSIS [None]
